FAERS Safety Report 23869073 (Version 2)
Quarter: 2024Q3

REPORT INFORMATION
  Report Type: Spontaneous
  Country: US (occurrence: US)
  Receive Date: 20240517
  Receipt Date: 20240723
  Transmission Date: 20241017
  Serious: Yes (Other)
  Sender: COVIS PHARMA
  Company Number: US-Covis Pharma GmbH-2024COV00572

PATIENT
  Sex: Female

DRUGS (1)
  1. FERAHEME [Suspect]
     Active Substance: FERUMOXYTOL NON-STOICHIOMETRIC MAGNETITE
     Indication: Iron deficiency anaemia

REACTIONS (2)
  - Hepatic lesion [Not Recovered/Not Resolved]
  - Haemochromatosis [Not Recovered/Not Resolved]
